FAERS Safety Report 9913645 (Version 1)
Quarter: 2014Q1

REPORT INFORMATION
  Report Type: Spontaneous
  Country: US (occurrence: None)
  Receive Date: 20140219
  Receipt Date: 20140219
  Transmission Date: 20141002
  Serious: Yes (Other)
  Sender: FDA-Public Use
  Company Number: None

PATIENT
  Age: 54 Year
  Sex: Female
  Weight: 68.04 kg

DRUGS (2)
  1. DEXILANT [Suspect]
     Indication: GASTROOESOPHAGEAL REFLUX DISEASE
     Route: 048
     Dates: start: 20140113, end: 20140218
  2. DEXILANT [Suspect]
     Indication: REFLUX LARYNGITIS
     Route: 048
     Dates: start: 20140113, end: 20140218

REACTIONS (2)
  - Diarrhoea haemorrhagic [None]
  - Melaena [None]
